FAERS Safety Report 9778133 (Version 1)
Quarter: 2013Q4

REPORT INFORMATION
  Report Type: Spontaneous
  Country: US (occurrence: US)
  Receive Date: 20131223
  Receipt Date: 20131223
  Transmission Date: 20140711
  Serious: No
  Sender: FDA-Public Use
  Company Number: US-JNJFOC-20131203524

PATIENT
  Sex: Male
  Weight: 90.72 kg

DRUGS (5)
  1. INVEGA [Suspect]
     Indication: BIPOLAR DISORDER
     Route: 048
     Dates: start: 201211
  2. LITHIUM [Concomitant]
     Indication: BIPOLAR DISORDER
  3. LAMICTAL [Concomitant]
     Route: 048
  4. ADDERALL [Concomitant]
     Route: 048
  5. SEROQUEL [Concomitant]
     Indication: SLEEP DISORDER

REACTIONS (2)
  - General physical health deterioration [Not Recovered/Not Resolved]
  - Blood testosterone decreased [Not Recovered/Not Resolved]
